FAERS Safety Report 19592857 (Version 3)
Quarter: 2022Q4

REPORT INFORMATION
  Report Type: Spontaneous
  Country: US (occurrence: US)
  Receive Date: 20210722
  Receipt Date: 20221212
  Transmission Date: 20230113
  Serious: Yes (Hospitalization)
  Sender: FDA-Public Use
  Company Number: US-KARYOPHARM-2021KPT000776

PATIENT

DRUGS (13)
  1. XPOVIO [Suspect]
     Active Substance: SELINEXOR
     Indication: Plasma cell myeloma
     Dosage: 100 MG, WEEKLY
     Route: 048
     Dates: start: 20210412, end: 2022
  2. ACYCLOVIR [Concomitant]
     Active Substance: ACYCLOVIR
  3. CRESTOR [Concomitant]
     Active Substance: ROSUVASTATIN CALCIUM
  4. CYMBALTA [Concomitant]
     Active Substance: DULOXETINE HYDROCHLORIDE
  5. DEXAMETHASONE [Concomitant]
     Active Substance: DEXAMETHASONE
  6. DUONEB [Concomitant]
     Active Substance: ALBUTEROL SULFATE\IPRATROPIUM BROMIDE
  7. GABAPENTIN [Concomitant]
     Active Substance: GABAPENTIN
  8. ELIQUIS [Concomitant]
     Active Substance: APIXABAN
  9. ONDANSETRON [Concomitant]
     Active Substance: ONDANSETRON
  10. PROCHLORPERAZINE MALEATE [Concomitant]
     Active Substance: PROCHLORPERAZINE MALEATE
  11. ROPINIROLE [Concomitant]
     Active Substance: ROPINIROLE
  12. LEVOXYL [Concomitant]
     Active Substance: LEVOTHYROXINE SODIUM
  13. FLONASE [Concomitant]
     Active Substance: FLUTICASONE PROPIONATE

REACTIONS (10)
  - COVID-19 pneumonia [Unknown]
  - Platelet count decreased [Unknown]
  - Haemoglobin decreased [Unknown]
  - Somnolence [Unknown]
  - Fatigue [Unknown]
  - Dyspnoea exertional [Unknown]
  - Asthenia [Unknown]
  - Diarrhoea [Recovered/Resolved]
  - Nausea [Unknown]
  - Decreased appetite [Unknown]

NARRATIVE: CASE EVENT DATE: 20210601
